FAERS Safety Report 23105410 (Version 3)
Quarter: 2023Q4

REPORT INFORMATION
  Report Type: Report from Study
  Country: CL (occurrence: CL)
  Receive Date: 20231025
  Receipt Date: 20231114
  Transmission Date: 20240110
  Serious: Yes (Hospitalization)
  Sender: FDA-Public Use
  Company Number: CL-002147023-NVSC2023CL162874

PATIENT
  Age: 22 Year
  Sex: Female

DRUGS (1)
  1. KESIMPTA [Suspect]
     Active Substance: OFATUMUMAB
     Indication: Relapsing-remitting multiple sclerosis
     Dosage: 20 MG, QW
     Route: 058
     Dates: start: 20230719

REACTIONS (8)
  - Cystitis [Unknown]
  - Polyuria [Unknown]
  - Haematuria [Unknown]
  - Abdominal pain lower [Unknown]
  - Vitamin D deficiency [Unknown]
  - Dysuria [Unknown]
  - Memory impairment [Unknown]
  - Product storage error [Recovered/Resolved]
